FAERS Safety Report 6144640-0 (Version None)
Quarter: 2009Q2

REPORT INFORMATION
  Report Type: 
  Country: None (occurrence: None)
  Receive Date: 20090406
  Receipt Date: 20090330
  Transmission Date: 20091009
  Serious: Yes (Other)
  Sender: FDA-Public Use
  Company Number: A0765487A

PATIENT
  Age: 50 Year
  Sex: Male
  Weight: 101.8 kg

DRUGS (4)
  1. REQUIP [Suspect]
     Indication: TREMOR
     Dosage: 8MG PER DAY
     Route: 048
     Dates: start: 20080806
  2. HYDROCHLOROTHIAZIDE [Concomitant]
     Dosage: 12.5MG PER DAY
     Route: 048
  3. PAXIL [Concomitant]
     Dosage: 20MG PER DAY
     Route: 048
  4. LISINOPRIL [Concomitant]
     Dosage: 40MG PER DAY
     Route: 048

REACTIONS (2)
  - LOSS OF CONSCIOUSNESS [None]
  - WRONG DRUG ADMINISTERED [None]
